FAERS Safety Report 8418089-1 (Version None)
Quarter: 2012Q2

REPORT INFORMATION
  Report Type: 
  Country: None (occurrence: None)
  Receive Date: 20120604
  Receipt Date: 20120604
  Transmission Date: 20120825
  Serious: Yes (Other)
  Sender: FDA-Public Use
  Company Number: None

PATIENT
  Sex: Male

DRUGS (3)
  1. TRUVADA [Concomitant]
  2. NORVIR [Suspect]
     Dosage: 100MG BID PO
     Route: 048
     Dates: start: 20120221
  3. PREZISTA [Concomitant]

REACTIONS (1)
  - EYE HAEMORRHAGE [None]
